FAERS Safety Report 5895677-8 (Version None)
Quarter: 2008Q3

REPORT INFORMATION
  Report Type: 
  Country: None (occurrence: None)
  Receive Date: 20080924
  Receipt Date: 20071004
  Transmission Date: 20090109
  Serious: No
  Sender: FDA-Public Use
  Company Number: US-BAYER-200713678BWH

PATIENT
  Age: 69 Year
  Sex: Female
  Weight: 61 kg

DRUGS (14)
  1. CIPRO [Suspect]
     Indication: DRUG USE FOR UNKNOWN INDICATION
     Route: 065
  2. ZOCOR [Concomitant]
     Dates: start: 20051027
  3. FLONASE [Concomitant]
     Dates: start: 20051027
  4. HCZT [Concomitant]
  5. ELAVIL [Concomitant]
     Dates: start: 20060202
  6. NORVASC [Concomitant]
     Dates: start: 20060504
  7. AMBIEN [Concomitant]
  8. NIACIN [Concomitant]
     Dates: start: 20061207
  9. LEXAPRO [Concomitant]
  10. NITROFURANTOIN [Concomitant]
  11. DEPAKOTE [Concomitant]
     Dates: start: 20060706
  12. CELEXA [Concomitant]
  13. PAXIL [Concomitant]
  14. BONIVA [Concomitant]

REACTIONS (1)
  - DRUG HYPERSENSITIVITY [None]
